FAERS Safety Report 7557618-7 (Version None)
Quarter: 2011Q2

REPORT INFORMATION
  Report Type: 
  Country: None (occurrence: None)
  Receive Date: 20110620
  Receipt Date: 20110608
  Transmission Date: 20111010
  Serious: Yes (Hospitalization)
  Sender: FDA-Public Use
  Company Number: JP-ACTELION-A-CH2011-50129

PATIENT
  Sex: Female
  Weight: 29 kg

DRUGS (8)
  1. OXYGEN [Concomitant]
  2. TRICHLORMETHIAZIDE [Concomitant]
  3. FUROSEMIDE [Concomitant]
  4. TRACLEER [Suspect]
     Dosage: 31.25 MG, BID
     Route: 048
     Dates: start: 20101013, end: 20101014
  5. TRACLEER [Suspect]
     Indication: PULMONARY HYPERTENSION
     Dosage: 62.5 MG, BID
     Route: 048
     Dates: start: 20101015, end: 20101215
  6. TIOTROPIUM BROMIDE [Concomitant]
  7. BENIDIPINE HYDROCHLORIDE [Concomitant]
  8. FEXOFENADINE HCL [Concomitant]

REACTIONS (6)
  - CHOLECYSTITIS [None]
  - ALANINE AMINOTRANSFERASE INCREASED [None]
  - RESPIRATORY FAILURE [None]
  - HEPATIC ENZYME INCREASED [None]
  - ASPARTATE AMINOTRANSFERASE INCREASED [None]
  - GAMMA-GLUTAMYLTRANSFERASE INCREASED [None]
